FAERS Safety Report 14768968 (Version 11)
Quarter: 2020Q2

REPORT INFORMATION
  Report Type: Spontaneous
  Country: US (occurrence: US)
  Receive Date: 20180417
  Receipt Date: 20200610
  Transmission Date: 20200713
  Serious: Yes (Other)
  Sender: FDA-Public Use
  Company Number: US-PFIZER INC-2018157076

PATIENT
  Age: 63 Year
  Sex: Female

DRUGS (1)
  1. XELJANZ XR [Suspect]
     Active Substance: TOFACITINIB CITRATE
     Indication: RHEUMATOID ARTHRITIS
     Dosage: 11 MG, DAILY
     Route: 048
     Dates: start: 20180418, end: 20200530

REACTIONS (25)
  - Headache [Unknown]
  - Chromaturia [Unknown]
  - Depression [Unknown]
  - Palpitations [Unknown]
  - Agitation [Unknown]
  - Blood sodium decreased [Unknown]
  - Tendonitis [Unknown]
  - Cough [Unknown]
  - Feeling abnormal [Unknown]
  - Peripheral swelling [Unknown]
  - Seizure [Unknown]
  - Hyperhidrosis [Unknown]
  - Gingival pain [Unknown]
  - Disturbance in attention [Unknown]
  - Dizziness [Unknown]
  - Fatigue [Unknown]
  - Somnolence [Unknown]
  - Arthralgia [Unknown]
  - Dry skin [Unknown]
  - Tremor [Unknown]
  - Disease recurrence [Unknown]
  - Arrhythmia [Unknown]
  - Hypoaesthesia [Unknown]
  - Varicose vein [Unknown]
  - Anxiety [Unknown]

NARRATIVE: CASE EVENT DATE: 2018
